FAERS Safety Report 25752604 (Version 1)
Quarter: 2025Q3

REPORT INFORMATION
  Report Type: Spontaneous
  Country: US (occurrence: None)
  Receive Date: 20250902
  Receipt Date: 20250902
  Transmission Date: 20251020
  Serious: Yes (Other)
  Sender: ALKERMES
  Company Number: US-ALKERMES INC.-ALK-2025-002254

PATIENT
  Sex: Male

DRUGS (4)
  1. VIVITROL [Suspect]
     Active Substance: NALTREXONE
     Indication: Dependence
  2. PTSD meds [Concomitant]
     Indication: Post-traumatic stress disorder
     Route: 065
  3. Depression meds [Concomitant]
     Indication: Depression
     Route: 065
  4. 12 other medications [Concomitant]
     Indication: Product used for unknown indication
     Route: 065

REACTIONS (6)
  - Cerebrovascular accident [Unknown]
  - Thrombosis [Unknown]
  - Spinal fracture [Unknown]
  - Peripheral swelling [Unknown]
  - Mobility decreased [Unknown]
  - Myalgia [Unknown]
